FAERS Safety Report 19890123 (Version 1)
Quarter: 2021Q3

REPORT INFORMATION
  Report Type: Spontaneous
  Country: LB (occurrence: LB)
  Receive Date: 20210927
  Receipt Date: 20210927
  Transmission Date: 20211014
  Serious: Yes (Other)
  Sender: FDA-Public Use
  Company Number: LB-CELGENEUS-LBN-20210906102

PATIENT
  Age: 54 Year
  Sex: Female
  Weight: 100 kg

DRUGS (1)
  1. LUSPATERCEPT. [Suspect]
     Active Substance: LUSPATERCEPT
     Indication: MYELODYSPLASTIC SYNDROME
     Dosage: 150 MILLIGRAM
     Route: 058

REACTIONS (1)
  - Splenic vein thrombosis [Recovered/Resolved with Sequelae]

NARRATIVE: CASE EVENT DATE: 20210901
